FAERS Safety Report 5610013-X (Version None)
Quarter: 2008Q1

REPORT INFORMATION
  Report Type: 
  Country: None (occurrence: None)
  Receive Date: 20080129
  Receipt Date: 20080122
  Transmission Date: 20080703
  Serious: Yes (Death)
  Sender: FDA-Public Use
  Company Number: 68902

PATIENT
  Age: 34 Year
  Sex: Female

DRUGS (7)
  1. NAPROXEN [Suspect]
     Indication: DRUG USE FOR UNKNOWN INDICATION
     Dosage: ORAL
     Route: 048
  2. DICLOFENAC SODIUM [Suspect]
     Indication: DRUG USE FOR UNKNOWN INDICATION
     Dosage: ORAL
     Route: 048
  3. IBUPROFEN [Suspect]
  4. CLOMIPHENE CITRATE [Suspect]
  5. VENLAFAXINE HCL [Suspect]
  6. ETHANOL [Suspect]
  7. COUGH/COLD PREPARATIONS [Concomitant]

REACTIONS (1)
  - DEATH [None]
